FAERS Safety Report 9602545 (Version 2)
Quarter: 2013Q4

REPORT INFORMATION
  Report Type: Spontaneous
  Country: US (occurrence: US)
  Receive Date: 20131007
  Receipt Date: 20131007
  Transmission Date: 20140711
  Serious: No
  Sender: FDA-Public Use
  Company Number: US-PFIZER INC-2013265742

PATIENT
  Age: 65 Year
  Sex: Female

DRUGS (7)
  1. FELDENE [Suspect]
     Dosage: 1 DF, DAILY
  2. PIROXICAM [Suspect]
     Dosage: UNK
  3. ASPIRIN [Concomitant]
     Dosage: UNK
  4. BENICAR [Concomitant]
     Dosage: UNK
  5. MELATONIN [Concomitant]
     Dosage: UNK
  6. NORCO [Concomitant]
     Dosage: UNK
  7. TRIAMCINOLONE [Concomitant]
     Dosage: UNK

REACTIONS (1)
  - Drug hypersensitivity [Unknown]
